FAERS Safety Report 17500124 (Version 1)
Quarter: 2020Q1

REPORT INFORMATION
  Report Type: Spontaneous
  Country: US (occurrence: US)
  Receive Date: 20200305
  Receipt Date: 20200305
  Transmission Date: 20200409
  Serious: Yes (Hospitalization, Other)
  Sender: FDA-Public Use
  Company Number: US-CHEPLA-MYERS SQUIBB COMPANY-BMS-2019-088235

PATIENT
  Age: 54 Year
  Sex: Female

DRUGS (7)
  1. GANCICLOVIR. [Suspect]
     Active Substance: GANCICLOVIR
     Indication: CYTOMEGALOVIRUS INFECTION
     Dosage: 2 MG/0.01 ML WAS ADMINISTERED, INTRAVITREAL INJECTION,
     Route: 050
  2. VALGANCICLOVIR. [Suspect]
     Active Substance: VALGANCICLOVIR
  3. ETOPOSIDE. [Suspect]
     Active Substance: ETOPOSIDE
     Indication: T-CELL LYMPHOMA
     Route: 065
  4. FOSCARNET [Concomitant]
     Active Substance: FOSCARNET
     Dosage: MAINTENANCE DOSE 90 MG/KG/D
     Route: 065
  5. CARMUSTINE. [Suspect]
     Active Substance: CARMUSTINE
     Indication: T-CELL LYMPHOMA
     Route: 065
  6. CYTARABINE. [Suspect]
     Active Substance: CYTARABINE
     Indication: T-CELL LYMPHOMA
     Route: 065
  7. MELPHALAN. [Suspect]
     Active Substance: MELPHALAN
     Indication: T-CELL LYMPHOMA
     Route: 065

REACTIONS (3)
  - Product use issue [Recovered/Resolved]
  - Febrile neutropenia [Unknown]
  - Bacteraemia [Unknown]
